FAERS Safety Report 6908228-3 (Version None)
Quarter: 2010Q3

REPORT INFORMATION
  Report Type: 
  Country: None (occurrence: None)
  Receive Date: 20100708
  Receipt Date: 20090323
  Transmission Date: 20110219
  Serious: Yes (Other)
  Sender: FDA-Public Use
  Company Number: 2009158790

PATIENT
  Age: 43 Year
  Sex: Female

DRUGS (8)
  1. CHANTIX [Suspect]
     Dates: start: 20090114
  2. ABILIFY [Concomitant]
  3. METFORMIN HCL [Concomitant]
  4. PAXIL [Concomitant]
  5. SIMVASTATIN [Concomitant]
  6. RANITIDINE [Concomitant]
  7. NAPROXEN [Concomitant]
  8. PRAZOSIN GITS [Concomitant]

REACTIONS (2)
  - DEPRESSION [None]
  - SUICIDAL IDEATION [None]
